FAERS Safety Report 22039974 (Version 2)
Quarter: 2024Q2

REPORT INFORMATION
  Report Type: Spontaneous
  Country: US (occurrence: US)
  Receive Date: 20230227
  Receipt Date: 20240419
  Transmission Date: 20240716
  Serious: Yes (Life-Threatening, Hospitalization, Other)
  Sender: FDA-Public Use
  Company Number: None

PATIENT
  Age: 37 Year
  Sex: Male
  Weight: 41 kg

DRUGS (24)
  1. LIDOCAINE [Suspect]
     Active Substance: LIDOCAINE
     Indication: Anaesthesia
     Route: 065
  2. LIDOCAINE [Suspect]
     Active Substance: LIDOCAINE
     Dosage: 2% LIDOCAINE 72 MG
     Route: 065
  3. LIDOCAINE [Suspect]
     Active Substance: LIDOCAINE
     Route: 065
  4. ARTICAINE [Suspect]
     Active Substance: ARTICAINE
     Indication: Anaesthesia
     Dosage: 3.6 ML OF 4%
     Route: 065
  5. ARTICAINE [Suspect]
     Active Substance: ARTICAINE
     Dosage: 1.8ML OF 4%
     Route: 065
  6. ARTICAINE [Suspect]
     Active Substance: ARTICAINE
     Route: 065
  7. MIDAZOLAM [Suspect]
     Active Substance: MIDAZOLAM
     Indication: Anaesthesia
     Route: 042
  8. MIDAZOLAM [Suspect]
     Active Substance: MIDAZOLAM
     Dosage: REPEATED 15 MINUTES AFTER THE FIRST DOSE
     Route: 065
  9. MIDAZOLAM [Suspect]
     Active Substance: MIDAZOLAM
     Route: 065
  10. PROPOFOL [Suspect]
     Active Substance: PROPOFOL
     Indication: Product used for unknown indication
     Route: 065
  11. PROPOFOL [Suspect]
     Active Substance: PROPOFOL
     Route: 065
  12. SUCCINYLCHOLINE CHLORIDE [Suspect]
     Active Substance: SUCCINYLCHOLINE CHLORIDE
     Indication: Product used for unknown indication
     Route: 065
  13. EPINEPHRINE [Suspect]
     Active Substance: EPINEPHRINE
     Indication: Anaesthesia
     Dosage: 1:100 000
     Route: 065
  14. EPINEPHRINE [Suspect]
     Active Substance: EPINEPHRINE
     Dosage: 1:100 000 (36 LG)
     Route: 065
  15. EPINEPHRINE [Suspect]
     Active Substance: EPINEPHRINE
     Dosage: 1:100 000 (18 LG)
     Route: 065
  16. EPINEPHRINE [Suspect]
     Active Substance: EPINEPHRINE
     Dosage: 1:100 000 (36 LG) APPROXIMATELY 45 MINUTES AFTER THE PREVIOUS MANDIBULAR INJECTIONS
     Route: 065
  17. EPINEPHRINE [Suspect]
     Active Substance: EPINEPHRINE
     Dosage: 1:100 000 (18 LG) WAS ADMINISTERED TO TEETH NOS. 17 AND 18
     Route: 065
  18. EPINEPHRINE [Suspect]
     Active Substance: EPINEPHRINE
     Dosage: 108 LG
     Route: 065
  19. SUCCINYLCHOLINE [Suspect]
     Active Substance: SUCCINYLCHOLINE
     Indication: Product used for unknown indication
     Route: 065
  20. OXYCODONE [Concomitant]
     Active Substance: OXYCODONE\OXYCODONE HYDROCHLORIDE
     Indication: Product used for unknown indication
     Route: 065
  21. DIOCTYL SODIUM SULFOSUCCINATE [Concomitant]
     Indication: Product used for unknown indication
     Route: 065
  22. SENNA S [Concomitant]
     Active Substance: DOCUSATE SODIUM\SENNA LEAF
     Indication: Product used for unknown indication
     Route: 065
  23. SODIUM CHLORIDE [Concomitant]
     Active Substance: SODIUM CHLORIDE
     Indication: Product used for unknown indication
     Route: 065
  24. DOCUSATE [Concomitant]
     Active Substance: DOCUSATE
     Indication: Product used for unknown indication
     Route: 065

REACTIONS (5)
  - Hypoxia [Recovered/Resolved]
  - Electrocardiogram ST segment elevation [Recovered/Resolved]
  - Toxicity to various agents [Recovered/Resolved]
  - Hyporesponsive to stimuli [Recovered/Resolved]
  - Overdose [Unknown]
